FAERS Safety Report 9113837 (Version 2)
Quarter: 2013Q1

REPORT INFORMATION
  Report Type: Spontaneous
  Country: US (occurrence: US)
  Receive Date: 20130208
  Receipt Date: 20130329
  Transmission Date: 20140127
  Serious: Yes (Hospitalization)
  Sender: FDA-Public Use
  Company Number: US-PFIZER INC-2013053236

PATIENT
  Age: 71 Year
  Sex: Female
  Weight: 81.6 kg

DRUGS (6)
  1. ACCUPRIL [Suspect]
     Indication: BLOOD POTASSIUM INCREASED
     Dosage: 40 MG, DAILY
     Route: 048
     Dates: start: 201301
  2. ACCUPRIL [Suspect]
     Dosage: 40 MG TABLET SPLIT INTO HALF, 1X/DAY
     Route: 048
     Dates: start: 201301, end: 201301
  3. METFORMIN [Concomitant]
     Indication: DIABETES MELLITUS
     Dosage: 1000 MG, 2X/DAY
  4. INSULIN [Concomitant]
     Indication: DIABETES MELLITUS
     Dosage: 70 IU, 1X/DAY, IN THE MORNING
  5. INSULIN [Concomitant]
     Dosage: 80 IU, 1X/DAY, IN THE EVENING
  6. HUMULIN [Concomitant]
     Indication: DIABETES MELLITUS
     Dosage: 25 IU, 2X/DAY

REACTIONS (4)
  - Chest pain [Unknown]
  - Heart rate irregular [Unknown]
  - Fatigue [Unknown]
  - Drug ineffective for unapproved indication [Unknown]
